FAERS Safety Report 25254109 (Version 1)
Quarter: 2025Q2

REPORT INFORMATION
  Report Type: Spontaneous
  Country: GB (occurrence: GB)
  Receive Date: 20250430
  Receipt Date: 20250430
  Transmission Date: 20250716
  Serious: Yes (Disabling)
  Sender: ROCHE
  Company Number: None

PATIENT
  Age: 65 Year
  Sex: Male

DRUGS (9)
  1. VABYSMO [Suspect]
     Active Substance: FARICIMAB-SVOA
     Indication: Diabetic retinal oedema
     Route: 065
     Dates: start: 20240711, end: 20241003
  2. VABYSMO [Suspect]
     Active Substance: FARICIMAB-SVOA
     Route: 065
     Dates: start: 20240905
  3. VABYSMO [Suspect]
     Active Substance: FARICIMAB-SVOA
     Route: 065
     Dates: start: 20240808
  4. VABYSMO [Suspect]
     Active Substance: FARICIMAB-SVOA
     Route: 065
     Dates: start: 20240905
  5. VABYSMO [Suspect]
     Active Substance: FARICIMAB-SVOA
     Route: 065
     Dates: start: 20240718
  6. VABYSMO [Suspect]
     Active Substance: FARICIMAB-SVOA
     Route: 065
     Dates: start: 20240808
  7. ATORVASTATIN [Concomitant]
     Active Substance: ATORVASTATIN
  8. AMLODIPINE [Concomitant]
     Active Substance: AMLODIPINE BESYLATE
  9. LISINOPRIL [Concomitant]
     Active Substance: LISINOPRIL

REACTIONS (1)
  - Macular ischaemia [Not Recovered/Not Resolved]
